FAERS Safety Report 8666476 (Version 3)
Quarter: 2013Q1

REPORT INFORMATION
  Report Type: Report from Study
  Country: FR (occurrence: FR)
  Receive Date: 20120716
  Receipt Date: 20130211
  Transmission Date: 20140127
  Serious: Yes (Other)
  Sender: FDA-Public Use
  Company Number: FR-ROCHE-1084450

PATIENT
  Sex: Male
  Weight: 67 kg

DRUGS (9)
  1. PEG-INTERFERON ALFA 2A [Suspect]
     Indication: CHRONIC MYELOID LEUKAEMIA
     Route: 058
     Dates: start: 20111128
  2. PEG-INTERFERON ALFA 2A [Suspect]
     Dosage: LAST DOSE: 13 JUL 2011
     Route: 058
     Dates: start: 20110531, end: 20110718
  3. PEG-INTERFERON ALFA 2A [Suspect]
     Route: 065
     Dates: start: 20110808
  4. NILOTINIB [Suspect]
     Indication: CHRONIC MYELOID LEUKAEMIA
     Route: 048
     Dates: start: 20110719
  5. NILOTINIB [Suspect]
     Dosage: LAST DOSE: 17 JUL 2011
     Route: 048
     Dates: start: 20110531, end: 20110714
  6. NILOTINIB [Suspect]
     Route: 065
     Dates: start: 20110829
  7. ALLOPURINOL [Concomitant]
     Route: 048
     Dates: start: 20110513
  8. HYDREA [Concomitant]
     Route: 048
     Dates: start: 20110513
  9. DIFFU K [Concomitant]
     Route: 048
     Dates: start: 20110514

REACTIONS (2)
  - Hepatocellular injury [Recovered/Resolved]
  - Thrombocytopenia [Recovered/Resolved]
